FAERS Safety Report 6371587-7 (Version None)
Quarter: 2009Q3

REPORT INFORMATION
  Report Type: 
  Country: None (occurrence: None)
  Receive Date: 20090923
  Receipt Date: 20070920
  Transmission Date: 20100115
  Serious: No
  Sender: FDA-Public Use
  Company Number: US-ASTRAZENECA-2007UW18789

PATIENT
  Age: 20038 Day
  Sex: Female

DRUGS (25)
  1. SEROQUEL [Suspect]
     Route: 048
  2. ZYPREXA [Concomitant]
     Dosage: 5 - 15 MG
     Route: 048
  3. MICRONASE [Concomitant]
  4. GLUCOPHAGE [Concomitant]
  5. PREMARIN [Concomitant]
  6. XANAX [Concomitant]
     Indication: PANIC ATTACK
     Route: 048
  7. AMBIEN [Concomitant]
     Route: 048
  8. WELLBUTRIN [Concomitant]
  9. CYTOMEL [Concomitant]
  10. LISINOPRIL [Concomitant]
  11. LAMICTAL [Concomitant]
  12. EFFEXOR [Concomitant]
     Dosage: 37.5 - 75 MG
  13. LASIX [Concomitant]
     Dosage: 20 - 160 MG
  14. ALBUTEROL [Concomitant]
  15. TIAZAC [Concomitant]
  16. GEMFIBROZIL [Concomitant]
  17. ASPIRIN [Concomitant]
  18. ZAROXOLYN [Concomitant]
  19. SINGULAIR [Concomitant]
  20. LANOXIN [Concomitant]
  21. ADVAIR DISKUS 100/50 [Concomitant]
     Dosage: 250 / 50 1 PUFF,  2/DAY
  22. COMBIVENT [Concomitant]
     Dosage: 2 PUFF 4/DAY
  23. HUMALOG MIX 75/25 [Concomitant]
     Dosage: 20 UNITS AM PLUS PM
     Dates: start: 20020130
  24. AVANDIA [Concomitant]
     Dates: end: 20020128
  25. PROZAC [Concomitant]
     Route: 048

REACTIONS (2)
  - DIABETES MELLITUS [None]
  - METABOLIC DISORDER [None]
